APPROVED DRUG PRODUCT: PROCANBID
Active Ingredient: PROCAINAMIDE HYDROCHLORIDE
Strength: 1GM
Dosage Form/Route: TABLET, EXTENDED RELEASE;ORAL
Application: N020545 | Product #002
Applicant: KING PHARMACEUTICALS INC
Approved: Jan 31, 1996 | RLD: No | RS: No | Type: DISCN